FAERS Safety Report 9382304 (Version 1)
Quarter: 2013Q3

REPORT INFORMATION
  Report Type: Spontaneous
  Country: US (occurrence: US)
  Receive Date: 20130703
  Receipt Date: 20130703
  Transmission Date: 20140515
  Serious: No
  Sender: FDA-Public Use
  Company Number: US-UPSHER-SMITH LABORATORIES, INC.-12002228

PATIENT
  Age: 40 Year
  Sex: Female

DRUGS (8)
  1. DIVIGEL [Suspect]
     Indication: HOT FLUSH
     Dosage: 0.5 MG, QD
     Route: 061
     Dates: start: 20120720
  2. BLACK COHOSH                       /01456805/ [Concomitant]
     Indication: HOT FLUSH
     Dosage: UNK
     Dates: start: 20120720
  3. MULTIVITAMIN                       /01229101/ [Concomitant]
     Dosage: UNK
  4. CALCIUM [Concomitant]
     Dosage: UNK
  5. VITAMIN B                          /00056102/ [Concomitant]
     Dosage: UNK
  6. VITAMIN C                          /00008001/ [Concomitant]
     Dosage: UNK
  7. FOLIC ACID [Concomitant]
     Dosage: UNK
  8. ZYRTEC                             /00884302/ [Concomitant]
     Dosage: UNK

REACTIONS (3)
  - Application site pain [Not Recovered/Not Resolved]
  - Pain [Not Recovered/Not Resolved]
  - Contusion [Not Recovered/Not Resolved]
